FAERS Safety Report 11868256 (Version 1)
Quarter: 2015Q4

REPORT INFORMATION
  Report Type: Spontaneous
  Country: US (occurrence: US)
  Receive Date: 20151224
  Receipt Date: 20151224
  Transmission Date: 20160305
  Serious: No
  Sender: FDA-Public Use
  Company Number: US-B.I. PHARMACEUTICALS,INC./RIDGEFIELD-2015-BI-69524BP

PATIENT
  Age: 65 Year
  Sex: Female
  Weight: 55 kg

DRUGS (14)
  1. ALBUTEROL. [Concomitant]
     Active Substance: ALBUTEROL
     Indication: EMPHYSEMA
  2. ADVAIR DISKUS [Concomitant]
     Active Substance: FLUTICASONE PROPIONATE\SALMETEROL XINAFOATE
     Indication: CHRONIC OBSTRUCTIVE PULMONARY DISEASE
     Dosage: DOSE PER APPLICATION AND DAILY DOSE: 500 MCG/50 MCG; FORMULATION: INHALATION AEROSOL
     Route: 055
     Dates: start: 201508
  3. METOPROLOL SUCCINATE. [Concomitant]
     Active Substance: METOPROLOL SUCCINATE
     Indication: HYPERTENSION
     Dosage: 25 MG
     Route: 048
  4. LYRICA [Concomitant]
     Active Substance: PREGABALIN
     Indication: PAIN
     Dosage: 75 MG
     Route: 048
  5. KEFLEX [Concomitant]
     Active Substance: CEPHALEXIN
     Indication: TUBERCULOSIS
     Route: 048
  6. ZITHROMAX [Concomitant]
     Active Substance: AZITHROMYCIN DIHYDRATE
     Indication: TUBERCULOSIS
     Route: 048
  7. FLEXERIL [Concomitant]
     Active Substance: CYCLOBENZAPRINE HYDROCHLORIDE
     Indication: PAIN
     Dosage: 10 MG
     Route: 048
  8. SPIRIVA [Suspect]
     Active Substance: TIOTROPIUM BROMIDE MONOHYDRATE
     Indication: EMPHYSEMA
  9. TYLENOL [Concomitant]
     Active Substance: ACETAMINOPHEN
     Indication: PYREXIA
     Dosage: 500 MG
     Route: 048
  10. SPIRIVA [Suspect]
     Active Substance: TIOTROPIUM BROMIDE MONOHYDRATE
     Indication: CHRONIC OBSTRUCTIVE PULMONARY DISEASE
     Dosage: 18 MCG
     Route: 055
     Dates: start: 201508
  11. ESTRADIOL. [Concomitant]
     Active Substance: ESTRADIOL
     Indication: BONE DISORDER
  12. ALBUTEROL. [Concomitant]
     Active Substance: ALBUTEROL
     Indication: CHRONIC OBSTRUCTIVE PULMONARY DISEASE
     Dosage: DOSE PER APPLICATION AND DAILY DOSE: 0.83 %; FORMULATION: INHALATION SOLUTION
     Route: 055
     Dates: start: 1999
  13. PENICILLIN PV [Concomitant]
     Indication: TUBERCULOSIS
     Route: 048
  14. ESTRADIOL. [Concomitant]
     Active Substance: ESTRADIOL
     Indication: HYSTERECTOMY
     Dosage: 0.5 MG
     Route: 048

REACTIONS (9)
  - Wheezing [Not Recovered/Not Resolved]
  - Cough [Not Recovered/Not Resolved]
  - Hypoaesthesia [Not Recovered/Not Resolved]
  - Nausea [Recovered/Resolved]
  - Neck pain [Not Recovered/Not Resolved]
  - Product quality issue [Not Recovered/Not Resolved]
  - Poor quality sleep [Not Recovered/Not Resolved]
  - Hand fracture [Not Recovered/Not Resolved]
  - Dyspnoea [Not Recovered/Not Resolved]

NARRATIVE: CASE EVENT DATE: 201508
